FAERS Safety Report 7095851-1 (Version None)
Quarter: 2010Q4

REPORT INFORMATION
  Report Type: 
  Country: None (occurrence: None)
  Receive Date: 20101111
  Receipt Date: 20090316
  Transmission Date: 20110411
  Serious: No
  Sender: FDA-Public Use
  Company Number: US-KINGPHARMUSA00001-K200900294

PATIENT
  Age: 46 Year
  Sex: Female

DRUGS (1)
  1. INTAL [Suspect]
     Dosage: UNK
     Dates: start: 19980101, end: 20080101

REACTIONS (1)
  - HYPERSENSITIVITY [None]
